FAERS Safety Report 9476674 (Version 2)
Quarter: 2013Q3

REPORT INFORMATION
  Report Type: Spontaneous
  Country: US (occurrence: US)
  Receive Date: 20130826
  Receipt Date: 20130826
  Transmission Date: 20140515
  Serious: Yes (Hospitalization)
  Sender: FDA-Public Use
  Company Number: US-BRISTOL-MYERS SQUIBB COMPANY-19004936

PATIENT
  Age: 51 Year
  Sex: Female

DRUGS (1)
  1. KENALOG INJ [Suspect]
     Indication: INTERVERTEBRAL DISC PROTRUSION
     Dosage: EXP. SEP14,JUL14,AUG14
     Dates: start: 20130405

REACTIONS (1)
  - Pancreatitis acute [Unknown]
